FAERS Safety Report 13074086 (Version 1)
Quarter: 2016Q4

REPORT INFORMATION
  Report Type: Spontaneous
  Country: FR (occurrence: FR)
  Receive Date: 20161229
  Receipt Date: 20161229
  Transmission Date: 20170207
  Serious: Yes (Disabling, Other)
  Sender: FDA-Public Use
  Company Number: FR-MACLEODS PHARMACEUTICALS US LTD-MAC2016004107

PATIENT

DRUGS (11)
  1. OXACILLIN [Concomitant]
     Active Substance: OXACILLIN SODIUM
     Indication: ANTIBIOTIC THERAPY
     Dosage: 8 MG, QD
     Route: 042
  2. LEVOFLOXACIN. [Suspect]
     Active Substance: LEVOFLOXACIN
     Indication: WOUND INFECTION STAPHYLOCOCCAL
  3. FUROSEMIDE. [Concomitant]
     Active Substance: FUROSEMIDE
     Indication: PRODUCT USED FOR UNKNOWN INDICATION
     Dosage: UNK
     Route: 065
  4. PREDNISONE. [Concomitant]
     Active Substance: PREDNISONE
     Indication: POLYARTHRITIS
  5. OXACILLIN [Concomitant]
     Active Substance: OXACILLIN SODIUM
     Indication: WOUND INFECTION STAPHYLOCOCCAL
  6. LEVOFLOXACIN. [Suspect]
     Active Substance: LEVOFLOXACIN
     Indication: ANTIBIOTIC THERAPY
     Dosage: 250 MG, QD
     Route: 048
  7. ROUVASTATIN [Concomitant]
     Indication: PRODUCT USED FOR UNKNOWN INDICATION
     Dosage: UNK
     Route: 065
  8. PARACETAMOL [Concomitant]
     Active Substance: ACETAMINOPHEN
     Indication: PRODUCT USED FOR UNKNOWN INDICATION
     Dosage: UNK
     Route: 065
  9. BISPROLOL [Concomitant]
     Active Substance: BISOPROLOL
     Indication: PRODUCT USED FOR UNKNOWN INDICATION
     Dosage: UNK
     Route: 065
  10. PREDNISONE. [Concomitant]
     Active Substance: PREDNISONE
     Indication: ARTHRALGIA
     Dosage: UNK
     Route: 065
  11. COUMADINE [Concomitant]
     Active Substance: WARFARIN SODIUM
     Indication: PRODUCT USED FOR UNKNOWN INDICATION
     Dosage: UNK
     Route: 065

REACTIONS (4)
  - Haemarthrosis [Recovered/Resolved]
  - Ecchymosis [Recovered/Resolved]
  - Joint effusion [Recovered/Resolved]
  - Joint dislocation [Not Recovered/Not Resolved]
